FAERS Safety Report 9843803 (Version 2)
Quarter: 2014Q1

REPORT INFORMATION
  Report Type: Spontaneous
  Country: US (occurrence: None)
  Receive Date: 20131223
  Receipt Date: 20140328
  Transmission Date: 20141002
  Serious: Yes (Other)
  Sender: FDA-Public Use
  Company Number: 1000049976

PATIENT
  Age: 76 Year
  Sex: Female

DRUGS (10)
  1. LINZESS (LINACLOTIDE) (145 MICROGRAM, CAPSULES) [Suspect]
     Indication: IRRITABLE BOWEL SYNDROME
     Route: 048
     Dates: start: 20131008, end: 20131009
  2. LINZESS (LINACLOTIDE) (145 MICROGRAM, CAPSULES) [Suspect]
     Route: 048
     Dates: start: 20131008, end: 20131009
  3. LINZESS (LINACLOTIDE) (145 MICROGRAM, CAPSULES) [Suspect]
     Indication: IRRITABLE BOWEL SYNDROME
     Route: 048
     Dates: start: 20131029, end: 20131109
  4. LINZESS (LINACLOTIDE) (145 MICROGRAM, CAPSULES) [Suspect]
     Route: 048
     Dates: start: 20131029, end: 20131109
  5. OMEPRAZOLE [Concomitant]
  6. FLUCONAZOLE [Concomitant]
  7. LORATADINE [Concomitant]
  8. DIPHENHYDRAMINE [Concomitant]
  9. NAPROXEN [Concomitant]
  10. LORAZEPAM [Concomitant]

REACTIONS (4)
  - Diarrhoea [None]
  - Abdominal pain [None]
  - Abdominal distension [None]
  - Drug ineffective [None]
